FAERS Safety Report 16165162 (Version 1)
Quarter: 2019Q2

REPORT INFORMATION
  Report Type: Report from Study
  Country: GB (occurrence: GB)
  Receive Date: 20190405
  Receipt Date: 20190405
  Transmission Date: 20190711
  Serious: Yes (Other)
  Sender: FDA-Public Use
  Company Number: PHHY2019GB077176

PATIENT
  Age: 31 Year
  Sex: Female

DRUGS (1)
  1. HYRIMOZ [Suspect]
     Active Substance: ADALIMUMAB-ADAZ
     Indication: CROHN^S DISEASE
     Dosage: 160MG WEEK 0, 80MG WEEK 2, 40MG FORTNIGHTLY THEREAFTER
     Route: 058
     Dates: start: 20190331

REACTIONS (3)
  - Dizziness [Unknown]
  - Injection site pain [Unknown]
  - Dry mouth [Unknown]

NARRATIVE: CASE EVENT DATE: 20190331
